FAERS Safety Report 15959418 (Version 5)
Quarter: 2019Q2

REPORT INFORMATION
  Report Type: Spontaneous
  Country: US (occurrence: US)
  Receive Date: 20190214
  Receipt Date: 20190503
  Transmission Date: 20190711
  Serious: Yes (Other)
  Sender: FDA-Public Use
  Company Number: US-GLAXOSMITHKLINE-US2019GSK026854

PATIENT
  Sex: Female

DRUGS (4)
  1. PREVACID [Suspect]
     Active Substance: LANSOPRAZOLE
     Indication: GASTROOESOPHAGEAL REFLUX DISEASE
     Dosage: UNK
     Route: 065
  2. LANSOPRAZOLE. [Suspect]
     Active Substance: LANSOPRAZOLE
     Indication: PRODUCT USED FOR UNKNOWN INDICATION
     Dosage: 30 MG, UNK
     Route: 065
  3. OMEPRAZOLE. [Suspect]
     Active Substance: OMEPRAZOLE
     Indication: GASTROOESOPHAGEAL REFLUX DISEASE
     Dosage: 40 MG, UNK
     Route: 065
  4. PREVACID [Suspect]
     Active Substance: LANSOPRAZOLE
     Indication: PRODUCT USED FOR UNKNOWN INDICATION
     Dosage: 30 MG, QD
     Route: 065

REACTIONS (15)
  - Diabetic nephropathy [Unknown]
  - Renal impairment [Unknown]
  - Nocturia [Unknown]
  - Glomerular filtration rate decreased [Unknown]
  - Haematuria [Unknown]
  - Renal failure [Unknown]
  - Hypertensive nephropathy [Unknown]
  - Urinary incontinence [Unknown]
  - Acute kidney injury [Unknown]
  - Chronic kidney disease [Unknown]
  - Kidney infection [Unknown]
  - Microalbuminuria [Unknown]
  - Pollakiuria [Unknown]
  - Dysuria [Unknown]
  - Micturition urgency [Unknown]
